FAERS Safety Report 15749499 (Version 1)
Quarter: 2018Q4

REPORT INFORMATION
  Report Type: Spontaneous
  Country: FI (occurrence: FI)
  Receive Date: 20181221
  Receipt Date: 20181221
  Transmission Date: 20190205
  Serious: Yes (Death)
  Sender: FDA-Public Use
  Company Number: FI-ACCORD-096669

PATIENT
  Age: 77 Year
  Sex: Female

DRUGS (22)
  1. QUETIAPINE ACCORD [Suspect]
     Active Substance: QUETIAPINE
     Indication: PAIN
     Dosage: 25,MG,DAILY
     Route: 048
  2. VAGIFEM [Concomitant]
     Active Substance: ESTRADIOL
     Dosage: 20,MICRO G,WEEKLY
     Route: 067
  3. AMLODIPIN [Concomitant]
     Active Substance: AMLODIPINE BESYLATE
     Dosage: 5,MG,DAILY
     Route: 048
  4. FLIXOTIDE DISKUS [Concomitant]
     Active Substance: FLUTICASONE PROPIONATE
     Dosage: 500, MICRO G,DAILY
     Route: 055
  5. BISOPROLOL [Concomitant]
     Active Substance: BISOPROLOL
     Route: 048
  6. IMIGRAN RADIS [Concomitant]
  7. PARACETAMOL [Concomitant]
     Active Substance: ACETAMINOPHEN
     Dosage: 2000,MG,DAILY
  8. CYMBALTA [Suspect]
     Active Substance: DULOXETINE HYDROCHLORIDE
     Indication: PAIN
     Route: 048
  9. VENTOLINE DISKUS [Concomitant]
     Active Substance: ALBUTEROL SULFATE
     Route: 055
  10. PRAMIPEXOLE ORION [Concomitant]
     Dosage: 0.18,MG,DAILY
     Route: 048
  11. ATARAX [Concomitant]
     Active Substance: HYDROXYZINE HYDROCHLORIDE
     Dosage: 50,MG,DAILY
     Route: 048
  12. PEGORION [Concomitant]
     Active Substance: POLYETHYLENE GLYCOL 4000
     Dosage: 12,G,DAILY
     Route: 048
  13. TARGINIQ ER [Concomitant]
     Active Substance: NALOXONE HYDROCHLORIDE\OXYCODONE HYDROCHLORIDE
     Dosage: 2,DF,DAILY
     Route: 048
  14. ZINACEF [Concomitant]
     Active Substance: CEFUROXIME SODIUM
     Dosage: 4.5,G,DAILY
  15. BETOLVEX [Concomitant]
     Active Substance: CYANOCOBALAMIN
     Dosage: 1,MG,DAILY
     Route: 048
  16. ROSUVASTATIN/ROSUVASTATIN CALCIUM [Concomitant]
     Dosage: 10,MG,DAILY
     Route: 048
  17. OXYNORM [Concomitant]
     Active Substance: OXYCODONE HYDROCHLORIDE
     Route: 042
  18. SERENASE [Concomitant]
     Dosage: 2.5,MG,DAILY
  19. SIRDALUD [Concomitant]
     Active Substance: TIZANIDINE
  20. KETIPINOR [Suspect]
     Active Substance: QUETIAPINE FUMARATE
     Indication: PAIN
     Dosage: 25,MG,DAILY
     Route: 048
  21. LOSARTAN KRKA [Concomitant]
     Active Substance: LOSARTAN
     Dosage: 50,MG,DAILY
     Route: 048
  22. SOMAC [Concomitant]
     Active Substance: PANTOPRAZOLE SODIUM
     Dosage: 40,MG,DAILY
     Route: 048

REACTIONS (40)
  - Muscle spasms [Fatal]
  - Dizziness [Fatal]
  - C-reactive protein increased [Fatal]
  - Haemoglobin decreased [Fatal]
  - Death [Fatal]
  - Feeling abnormal [Fatal]
  - Nightmare [Fatal]
  - General physical health deterioration [Fatal]
  - Delusion [Fatal]
  - Pain [Fatal]
  - Acne [Fatal]
  - Emotional distress [Fatal]
  - Rash [Fatal]
  - Glomerular filtration rate decreased [Fatal]
  - Blood creatinine increased [Fatal]
  - Blood sodium decreased [Fatal]
  - Visual impairment [Fatal]
  - Depressed level of consciousness [Fatal]
  - Drug ineffective [Fatal]
  - Blood potassium decreased [Fatal]
  - Limb injury [Fatal]
  - Dyspnoea [Fatal]
  - Neoplasm malignant [Fatal]
  - Discoloured vomit [Fatal]
  - Serotonin syndrome [Fatal]
  - Malignant neoplasm progression [Fatal]
  - Dysstasia [Fatal]
  - Respiratory syncytial virus infection [Fatal]
  - Fall [Fatal]
  - Haematocrit decreased [Fatal]
  - Vision blurred [Fatal]
  - Blood pressure increased [Fatal]
  - Off label use [Unknown]
  - Loss of control of legs [Fatal]
  - Blood pressure decreased [Fatal]
  - Fatigue [Fatal]
  - Asthenia [Fatal]
  - Hallucination, visual [Fatal]
  - Papule [Fatal]
  - Red blood cell count decreased [Fatal]

NARRATIVE: CASE EVENT DATE: 201701
